FAERS Safety Report 17061439 (Version 1)
Quarter: 2019Q4

REPORT INFORMATION
  Report Type: Spontaneous
  Country: US (occurrence: US)
  Receive Date: 20191121
  Receipt Date: 20191121
  Transmission Date: 20200122
  Serious: No
  Sender: FDA-Public Use
  Company Number: US-BAUSCH-BL-2019-060009

PATIENT
  Age: 74 Year
  Sex: Male
  Weight: 76.27 kg

DRUGS (2)
  1. LATANOPROST OPHTHALMIC SOLUTION 0.005% [Suspect]
     Active Substance: LATANOPROST
     Indication: INTRAOCULAR PRESSURE INCREASED
     Route: 047
     Dates: start: 20190711
  2. DORZOLAMIDE HCL/TIMOLOL [Concomitant]
     Indication: PRODUCT USED FOR UNKNOWN INDICATION
     Route: 047

REACTIONS (5)
  - Therapeutic response unexpected [Unknown]
  - Eye pain [Not Recovered/Not Resolved]
  - Foreign body sensation in eyes [Not Recovered/Not Resolved]
  - Eye irritation [Not Recovered/Not Resolved]
  - Eyelash thickening [Not Recovered/Not Resolved]

NARRATIVE: CASE EVENT DATE: 201910
